FAERS Safety Report 15459682 (Version 1)
Quarter: 2018Q4

REPORT INFORMATION
  Report Type: Spontaneous
  Country: US (occurrence: US)
  Receive Date: 20181001
  Receipt Date: 20181001
  Transmission Date: 20190204
  Serious: Yes (Disabling)
  Sender: FDA-Public Use
  Company Number: None

PATIENT
  Sex: Female
  Weight: 76.05 kg

DRUGS (9)
  1. FLAXSEED [Concomitant]
     Active Substance: FLAX SEED
  2. ACYCLOVIR. [Concomitant]
     Active Substance: ACYCLOVIR
  3. VITAMIN D [Concomitant]
     Active Substance: CHOLECALCIFEROL
  4. XIAFLEX [Suspect]
     Active Substance: COLLAGENASE CLOSTRIDIUM HISTOLYTICUM
     Indication: PEAU D^ORANGE
     Dosage: ?          OTHER FREQUENCY:24 INJECTIONS X3;?
     Route: 058
  5. WELLBUTRIN [Concomitant]
     Active Substance: BUPROPION HYDROCHLORIDE
  6. VIIBRYD [Concomitant]
     Active Substance: VILAZODONE HYDROCHLORIDE
  7. VITAMIN C [Concomitant]
     Active Substance: ASCORBIC ACID
  8. FAMOTIDINE. [Concomitant]
     Active Substance: FAMOTIDINE
  9. ADULT MULTI B COMPLEX [Concomitant]

REACTIONS (7)
  - Swelling [None]
  - Arthralgia [None]
  - Contusion [None]
  - Peripheral swelling [None]
  - Waist circumference increased [None]
  - Weight increased [None]
  - Neck pain [None]
